FAERS Safety Report 4506411-8 (Version None)
Quarter: 2004Q4

REPORT INFORMATION
  Report Type: 
  Country: None (occurrence: None)
  Receive Date: 20041025
  Receipt Date: 20040729
  Transmission Date: 20050328
  Serious: Yes (Hospitalization, Disabling)
  Sender: FDA-Public Use
  Company Number: US-JNJFOC-20040800455

PATIENT
  Age: 47 Year
  Sex: Female
  Weight: 57.1532 kg

DRUGS (9)
  1. INFLIXMAB (INFLIXIMAB, RECOMBINANT) LYOPHILIZED POWDER [Suspect]
     Indication: CROHN'S DISEASE
     Dosage: 5 MG/KG, INTRAVENOUS
     Route: 042
     Dates: start: 20020322
  2. INFLIXMAB (INFLIXIMAB, RECOMBINANT) LYOPHILIZED POWDER [Suspect]
     Indication: CROHN'S DISEASE
     Dosage: 5 MG/KG, INTRAVENOUS
     Route: 042
     Dates: start: 20020517
  3. INFLIXMAB (INFLIXIMAB, RECOMBINANT) LYOPHILIZED POWDER [Suspect]
     Indication: CROHN'S DISEASE
     Dosage: 5 MG/KG, INTRAVENOUS
     Route: 042
     Dates: start: 20020722
  4. INFLIXMAB (INFLIXIMAB, RECOMBINANT) LYOPHILIZED POWDER [Suspect]
     Indication: CROHN'S DISEASE
     Dosage: 5 MG/KG, INTRAVENOUS
     Route: 042
     Dates: start: 20020920
  5. MERCAPTOPURINE [Suspect]
     Indication: CROHN'S DISEASE
     Dosage: 5 MG/KG, INTRAVENOUS
     Route: 042
     Dates: start: 20020322
  6. MESALAMINE [Suspect]
     Indication: CROHN'S DISEASE
  7. ANTIBIOTIC (ANTIBIOTICS) [Suspect]
     Indication: CROHN'S DISEASE
  8. BUDESONIDE (BUDESONIDE) [Suspect]
     Indication: CROHN'S DISEASE
  9. PREDNISONE [Concomitant]

REACTIONS (2)
  - CONDITION AGGRAVATED [None]
  - CROHN'S DISEASE [None]
